FAERS Safety Report 5894715-6 (Version None)
Quarter: 2008Q3

REPORT INFORMATION
  Report Type: 
  Country: None (occurrence: None)
  Receive Date: 20080924
  Receipt Date: 20080520
  Transmission Date: 20090109
  Serious: No
  Sender: FDA-Public Use
  Company Number: US-ASTRAZENECA-2008UW10389

PATIENT
  Age: 38 Year
  Sex: Male

DRUGS (6)
  1. SEROQUEL [Suspect]
     Route: 048
     Dates: start: 20030101
  2. DEPAKOTE [Suspect]
  3. ZYPREXA [Suspect]
  4. GEODON [Concomitant]
  5. HALDOL [Concomitant]
  6. EFFEXOR [Concomitant]

REACTIONS (6)
  - AGGRESSION [None]
  - BLOOD GLUCOSE ABNORMAL [None]
  - FATIGUE [None]
  - HEAD TITUBATION [None]
  - MEMORY IMPAIRMENT [None]
  - TONGUE BLACK HAIRY [None]
